FAERS Safety Report 7986261-0 (Version None)
Quarter: 2011Q4

REPORT INFORMATION
  Report Type: 
  Country: None (occurrence: None)
  Receive Date: 20111216
  Receipt Date: 20110302
  Transmission Date: 20120403
  Serious: No
  Sender: FDA-Public Use
  Company Number: US-BRISTOL-MYERS SQUIBB COMPANY-15500135

PATIENT
  Sex: Male

DRUGS (1)
  1. ABILIFY [Suspect]
     Dosage: 10MG TABLETS BROKEN INTO HALF IE., 5MG DOSE DAILY. A TOTAL OF 40MG WAS TAKEN.

REACTIONS (2)
  - DRUG INEFFECTIVE [None]
  - OVERDOSE [None]
